FAERS Safety Report 13047642 (Version 3)
Quarter: 2018Q2

REPORT INFORMATION
  Report Type: Spontaneous
  Country: FR (occurrence: FR)
  Receive Date: 20161220
  Receipt Date: 20180627
  Transmission Date: 20180711
  Serious: Yes (Hospitalization, Congenital Anomaly, Other)
  Sender: FDA-Public Use
  Company Number: FR-ABBVIE-16P-056-1815492-00

PATIENT
  Sex: Male

DRUGS (3)
  1. PEPSANE [Concomitant]
     Active Substance: DIMETHICONE\GUAIAZULENE
     Indication: PRODUCT USED FOR UNKNOWN INDICATION
  2. DEPAKINE CHRONO [Suspect]
     Active Substance: VALPROATE SODIUM
     Indication: MATERNAL EXPOSURE TIMING UNSPECIFIED
     Route: 064
  3. DEPAKINE CHRONO [Suspect]
     Active Substance: VALPROATE SODIUM
     Route: 063

REACTIONS (32)
  - Foetal growth restriction [Unknown]
  - Hydrocele [Unknown]
  - Memory impairment [Not Recovered/Not Resolved]
  - Visual impairment [Unknown]
  - Corrective lens user [Unknown]
  - Astigmatism [Unknown]
  - Dysgraphia [Not Recovered/Not Resolved]
  - Loss of personal independence in daily activities [Unknown]
  - Learning disorder [Not Recovered/Not Resolved]
  - Enuresis [Not Recovered/Not Resolved]
  - Malnutrition [Unknown]
  - Foetal anticonvulsant syndrome [Not Recovered/Not Resolved]
  - Cryptorchism [Unknown]
  - Hypermobility syndrome [Unknown]
  - Brachydactyly [Unknown]
  - Foot deformity [Unknown]
  - Tooth malformation [Unknown]
  - Scoliosis [Unknown]
  - Motor developmental delay [Unknown]
  - Speech disorder developmental [Not Recovered/Not Resolved]
  - Motor developmental delay [Not Recovered/Not Resolved]
  - Hand-eye coordination impaired [Not Recovered/Not Resolved]
  - Impaired reasoning [Not Recovered/Not Resolved]
  - Foetal exposure during pregnancy [Unknown]
  - Growth retardation [Unknown]
  - Learning disability [Unknown]
  - Developmental coordination disorder [Unknown]
  - Abnormal behaviour [Not Recovered/Not Resolved]
  - Disturbance in attention [Not Recovered/Not Resolved]
  - Dysmorphism [Unknown]
  - Peroneal nerve palsy [Unknown]
  - Exposure via breast milk [Unknown]
